FAERS Safety Report 15613553 (Version 2)
Quarter: 2018Q4

REPORT INFORMATION
  Report Type: Spontaneous
  Country: CN (occurrence: CN)
  Receive Date: 20181113
  Receipt Date: 20181128
  Transmission Date: 20190205
  Serious: Yes (Death, Other)
  Sender: FDA-Public Use
  Company Number: CN-ASTRAZENECA-2018SF41915

PATIENT
  Age: 59 Year
  Sex: Female
  Weight: 71.5 kg

DRUGS (4)
  1. FASLODEX [Suspect]
     Active Substance: FULVESTRANT
     Indication: METASTASES TO LIVER
     Route: 030
     Dates: start: 20180917
  2. EXEMESTANE. [Concomitant]
     Active Substance: EXEMESTANE
  3. PALBOCICLIB [Concomitant]
     Active Substance: PALBOCICLIB
  4. FASLODEX [Suspect]
     Active Substance: FULVESTRANT
     Indication: BREAST CANCER
     Route: 030
     Dates: start: 20180917

REACTIONS (8)
  - Decreased appetite [Unknown]
  - Ascites [Recovered/Resolved]
  - Metastases to lung [Unknown]
  - Hepatic failure [Fatal]
  - Dyspnoea [Unknown]
  - Hiccups [Unknown]
  - Gastrooesophageal reflux disease [Unknown]
  - Metastases to bone [Unknown]

NARRATIVE: CASE EVENT DATE: 20180928
